FAERS Safety Report 4347845-4 (Version None)
Quarter: 2004Q2

REPORT INFORMATION
  Report Type: 
  Country: None (occurrence: None)
  Receive Date: 20040422
  Receipt Date: 20040419
  Transmission Date: 20050107
  Serious: Yes (Other)
  Sender: FDA-Public Use
  Company Number: STA-AE-04-MTX-162

PATIENT
  Age: 66 Year
  Sex: Female

DRUGS (11)
  1. METHOTREXATE [Suspect]
     Dosage: 15 MG 1X PER 1 WK, ORAL
     Route: 048
     Dates: start: 19940101, end: 20040101
  2. METHOTREXATE [Suspect]
     Dosage: 17.5 MG 1X PER 1 WK, ORAL
     Route: 048
     Dates: start: 20040101
  3. ENBREL [Suspect]
     Indication: RHEUMATOID ARTHRITIS
     Dates: start: 20021001, end: 20030101
  4. ARAVA [Suspect]
     Dates: start: 19990101, end: 20000101
  5. PREMARIN [Concomitant]
  6. ASPIRIN [Concomitant]
  7. FUROSEMIDE [Concomitant]
  8. LISINOPRIL [Concomitant]
  9. PREDNISONE [Concomitant]
  10. KLOR-CON [Concomitant]
  11. METOPROLOL (METOPROLOL) [Concomitant]

REACTIONS (3)
  - CARDIAC FAILURE CONGESTIVE [None]
  - LUNG NEOPLASM MALIGNANT [None]
  - MYOCARDIAL INFARCTION [None]
